FAERS Safety Report 9401151 (Version 2)
Quarter: 2013Q3

REPORT INFORMATION
  Report Type: Spontaneous
  Country: US (occurrence: US)
  Receive Date: 20130715
  Receipt Date: 20130719
  Transmission Date: 20140515
  Serious: No
  Sender: FDA-Public Use
  Company Number: US-TEVA-418190USA

PATIENT
  Age: 30 Year
  Sex: Female
  Weight: 76.73 kg

DRUGS (6)
  1. PLAN B ONE-STEP [Suspect]
     Indication: POST COITAL CONTRACEPTION
     Dosage: 1.5 MILLIGRAM DAILY;
     Route: 048
     Dates: start: 20130707, end: 20130707
  2. NEXIUM [Concomitant]
     Indication: GASTRIC DISORDER
  3. VALCYCLOVIR [Concomitant]
     Indication: HERPES VIRUS INFECTION
  4. BORIC ACID SUPPOSITORY [Concomitant]
     Indication: VAGINAL DISCHARGE
  5. HYDROXYZINE [Concomitant]
     Indication: ANXIETY
  6. AMITRIPTYLINE [Concomitant]
     Indication: DEPRESSION

REACTIONS (3)
  - Vaginal discharge [Recovered/Resolved]
  - Breast pain [Recovered/Resolved]
  - Pelvic pain [Recovered/Resolved]
